FAERS Safety Report 8866457 (Version 3)
Quarter: 2013Q1

REPORT INFORMATION
  Report Type: Report from Study
  Country: AU (occurrence: AU)
  Receive Date: 20121025
  Receipt Date: 20130115
  Transmission Date: 20140127
  Serious: Yes (Hospitalization, Other)
  Sender: FDA-Public Use
  Company Number: AU-TEVA-366537USA

PATIENT
  Age: 76 Year
  Sex: Female
  Weight: 89 kg

DRUGS (2)
  1. TREANDA [Suspect]
     Indication: B-CELL LYMPHOMA
     Dosage: CYCLIC
     Route: 042
  2. OBINUTUZUMAB [Suspect]
     Indication: B-CELL LYMPHOMA
     Dosage: 8.9286 ML DAILY;
     Route: 042
     Dates: start: 20120308

REACTIONS (1)
  - Eastern Cooperative Oncology Group performance status worsened [Not Recovered/Not Resolved]
